FAERS Safety Report 8085463-5 (Version None)
Quarter: 2012Q1

REPORT INFORMATION
  Report Type: 
  Country: None (occurrence: None)
  Receive Date: 20120128
  Receipt Date: 20110406
  Transmission Date: 20120608
  Serious: No
  Sender: FDA-Public Use
  Company Number: US-ABBOTT-11P-163-0703135-00

PATIENT
  Sex: Male
  Weight: 95.34 kg

DRUGS (13)
  1. HUMIRA [Suspect]
     Indication: CROHN'S DISEASE
     Route: 058
     Dates: start: 20090701, end: 20110201
  2. TRICOR [Concomitant]
     Indication: BLOOD CHOLESTEROL INCREASED
  3. CINNAMON [Concomitant]
     Indication: MEDICAL DIET
  4. VITAMIN B-12 [Concomitant]
     Indication: VITAMIN SUPPLEMENTATION
  5. CARDURA [Concomitant]
     Indication: PRODUCT USED FOR UNKNOWN INDICATION
  6. FISH OIL [Concomitant]
     Indication: MINERAL SUPPLEMENTATION
  7. ACTOS [Concomitant]
     Indication: DIABETES MELLITUS
     Dosage: 45MG DAILY
  8. LISINOPRIL AND HYDROCHLOROTHIAZIDE [Concomitant]
     Indication: HYPERTENSION
     Dosage: 10/12.5MG
  9. FENIBRATE [Concomitant]
     Indication: PRODUCT USED FOR UNKNOWN INDICATION
  10. HUMIRA [Suspect]
     Indication: CROHN'S DISEASE
  11. HUMIRA [Suspect]
     Dates: start: 20110301
  12. MAGNESIUM [Concomitant]
     Indication: MINERAL SUPPLEMENTATION
  13. ZINC SULFATE [Concomitant]
     Indication: MINERAL SUPPLEMENTATION

REACTIONS (3)
  - PRURITUS [None]
  - HERPES ZOSTER [None]
  - RASH VESICULAR [None]
